FAERS Safety Report 13937473 (Version 3)
Quarter: 2018Q4

REPORT INFORMATION
  Report Type: Spontaneous
  Country: US (occurrence: US)
  Receive Date: 20170905
  Receipt Date: 20181005
  Transmission Date: 20190204
  Serious: Yes (Hospitalization, Other)
  Sender: FDA-Public Use
  Company Number: US-PFIZER INC-2017380513

PATIENT
  Age: 54 Year
  Sex: Male
  Weight: 95 kg

DRUGS (2)
  1. LIPITOR [Suspect]
     Active Substance: ATORVASTATIN CALCIUM
     Dosage: UNK
  2. LIPITOR [Suspect]
     Active Substance: ATORVASTATIN CALCIUM
     Indication: BLOOD CHOLESTEROL INCREASED
     Dosage: UNK
     Route: 048
     Dates: start: 1997, end: 201409

REACTIONS (3)
  - Progressive muscular atrophy [Not Recovered/Not Resolved]
  - Herpes zoster [Unknown]
  - Drug ineffective [Unknown]

NARRATIVE: CASE EVENT DATE: 19971201
